FAERS Safety Report 5769264-6 (Version None)
Quarter: 2008Q2

REPORT INFORMATION
  Report Type: 
  Country: None (occurrence: None)
  Receive Date: 20080610
  Receipt Date: 20080603
  Transmission Date: 20081010
  Serious: Yes (Hospitalization)
  Sender: FDA-Public Use
  Company Number: WAES 0806USA00576

PATIENT
  Age: 78 Year
  Sex: Female
  Weight: 58.0604 kg

DRUGS (13)
  1. PRINIVIL [Suspect]
     Dosage: PO
     Route: 048
     Dates: start: 19960101, end: 20060104
  2. LASOFOXIFENE UNK [Suspect]
     Indication: OSTEOPOROSIS
     Dosage: 0.5 MG/DAILY/PO
     Route: 048
     Dates: start: 20021001
  3. ALENDRONATE SODIUM [Concomitant]
  4. ASCORBIC ACID [Concomitant]
  5. ASPIRIN [Concomitant]
  6. CALCIUM [Concomitant]
  7. CYANOCOBALAMIN [Concomitant]
  8. FERROUS SULFATE TAB [Concomitant]
  9. ISOPHANE INSULIN [Concomitant]
  10. LOVASTATIN [Concomitant]
  11. OMEPRAZOLE [Concomitant]
  12. TOLTERODINE TARTRATE [Concomitant]
  13. VITAMINS [Concomitant]

REACTIONS (11)
  - BLOOD LACTIC ACID INCREASED [None]
  - COLITIS ISCHAEMIC [None]
  - ESCHERICHIA URINARY TRACT INFECTION [None]
  - HYPOTENSION [None]
  - HYPOVOLAEMIA [None]
  - METABOLIC ACIDOSIS [None]
  - MYOCARDIAL INFARCTION [None]
  - RENAL FAILURE ACUTE [None]
  - SYNCOPE [None]
  - THROMBOCYTOPENIA [None]
  - URINARY TRACT INFECTION [None]
